FAERS Safety Report 15507497 (Version 4)
Quarter: 2018Q4

REPORT INFORMATION
  Report Type: Spontaneous
  Country: CL (occurrence: CL)
  Receive Date: 20181016
  Receipt Date: 20181106
  Transmission Date: 20190205
  Serious: Yes (Life-Threatening, Hospitalization, Other)
  Sender: FDA-Public Use
  Company Number: PHHY2018CL034492

PATIENT
  Age: 68 Year
  Sex: Female

DRUGS (1)
  1. CICLOSPORIN [Suspect]
     Active Substance: CYCLOSPORINE
     Indication: PSORIASIS
     Dosage: 400 MG, QD
     Route: 065
     Dates: start: 201601

REACTIONS (5)
  - Infection [Unknown]
  - Dermatitis exfoliative generalised [Unknown]
  - Blood creatinine increased [Unknown]
  - Pustular psoriasis [Unknown]
  - Renal failure [Unknown]
